FAERS Safety Report 20525382 (Version 1)
Quarter: 2022Q1

REPORT INFORMATION
  Report Type: Spontaneous
  Country: US (occurrence: US)
  Receive Date: 20220228
  Receipt Date: 20220228
  Transmission Date: 20220423
  Serious: Yes (Other)
  Sender: FDA-Public Use
  Company Number: US-GLAXOSMITHKLINE-US2022GSK033607

PATIENT
  Sex: Female

DRUGS (14)
  1. ZANTAC [Suspect]
     Active Substance: RANITIDINE HYDROCHLORIDE
     Indication: Dyspepsia
     Dosage: 300 MG, AT LEAST ONCE DAILY
     Route: 065
     Dates: start: 201701, end: 201909
  2. ZANTAC [Suspect]
     Active Substance: RANITIDINE HYDROCHLORIDE
     Dosage: 300 MG, UP TO THREE PILLS PER DAY
     Route: 065
     Dates: start: 201701, end: 201909
  3. ZANTAC [Suspect]
     Active Substance: RANITIDINE HYDROCHLORIDE
     Indication: Dyspepsia
     Dosage: 300 MG, AT LEAST ONCE DAILY
     Route: 065
     Dates: start: 201701, end: 201909
  4. ZANTAC [Suspect]
     Active Substance: RANITIDINE HYDROCHLORIDE
     Dosage: 300 MG, UP TO THREE PILLS PER DAY
     Route: 065
     Dates: start: 201701, end: 201909
  5. RANITIDINE [Suspect]
     Active Substance: RANITIDINE
     Indication: Dyspepsia
     Dosage: 300 MG, AT LEAST ONCE DAILY
     Route: 065
     Dates: start: 201701, end: 201909
  6. RANITIDINE [Suspect]
     Active Substance: RANITIDINE
     Dosage: 300 MG, UP TO THREE PILLS PER DAY
     Route: 065
     Dates: start: 201701, end: 201909
  7. RANITIDINE [Suspect]
     Active Substance: RANITIDINE
     Indication: Dyspepsia
     Dosage: 300 MG, AT LEAST ONCE DAILY
     Route: 065
     Dates: start: 201701, end: 201909
  8. RANITIDINE [Suspect]
     Active Substance: RANITIDINE
     Dosage: 300 MG, UP TO THREE PILLS PER DAY
     Route: 065
     Dates: start: 201701, end: 201909
  9. ZANTAC [Suspect]
     Active Substance: RANITIDINE HYDROCHLORIDE
     Indication: Dyspepsia
     Dosage: 300 MG, AT LEAST ONCE DAILY
     Route: 065
     Dates: start: 201701, end: 201909
  10. ZANTAC [Suspect]
     Active Substance: RANITIDINE HYDROCHLORIDE
     Dosage: 300 MG, UP TO THREE PILLS PER DAY
     Route: 065
     Dates: start: 201701, end: 201909
  11. RANITIDINE [Suspect]
     Active Substance: RANITIDINE
     Indication: Dyspepsia
     Dosage: 300 MG, AT LEAST ONCE DAILY
     Route: 065
     Dates: start: 201701, end: 201909
  12. RANITIDINE [Suspect]
     Active Substance: RANITIDINE
     Dosage: 300 MG, UP TO THREE PILLS PER DAY
     Route: 065
     Dates: start: 201701, end: 201909
  13. RANITIDINE [Suspect]
     Active Substance: RANITIDINE
     Indication: Dyspepsia
     Dosage: 300 MG, AT LEAST ONCE DAILY
     Route: 065
     Dates: start: 201701, end: 201909
  14. RANITIDINE [Suspect]
     Active Substance: RANITIDINE
     Dosage: 300 MG, UP TO THREE PILLS PER DAY
     Route: 065
     Dates: start: 201701, end: 201909

REACTIONS (1)
  - Breast cancer [Unknown]
